FAERS Safety Report 5338315-5 (Version None)
Quarter: 2007Q2

REPORT INFORMATION
  Report Type: 
  Country: None (occurrence: None)
  Receive Date: 20070405
  Receipt Date: 20061113
  Transmission Date: 20071010
  Serious: No
  Sender: FDA-Public Use
  Company Number: US200611002200

PATIENT
  Age: 52 Year
  Sex: Female

DRUGS (8)
  1. CYMBALTA [Suspect]
     Indication: MOOD SWINGS
     Dosage: 30 MG
  2. ACIPHEX [Concomitant]
  3. INDOCIN [Concomitant]
  4. NASOCORT (BUDOSENIDE) [Concomitant]
  5. ACTONEL /USA/ (RISEDRONATE SODIUM) [Concomitant]
  6. MULTIVITAMIN (VITAMIN NOS) [Concomitant]
  7. DETROL [Concomitant]
  8. PRIMIDONE [Concomitant]

REACTIONS (5)
  - DECREASED APPETITE [None]
  - DIZZINESS [None]
  - INSOMNIA [None]
  - PSYCHOMOTOR HYPERACTIVITY [None]
  - VOMITING [None]
